FAERS Safety Report 6430657-5 (Version None)
Quarter: 2009Q4

REPORT INFORMATION
  Report Type: 
  Country: None (occurrence: None)
  Receive Date: 20091106
  Receipt Date: 20091103
  Transmission Date: 20100525
  Serious: Yes (Other)
  Sender: FDA-Public Use
  Company Number: B0600900A

PATIENT
  Age: 72 Year
  Sex: Female

DRUGS (2)
  1. DILATREND [Suspect]
     Indication: DRUG USE FOR UNKNOWN INDICATION
     Dosage: 12.5MG TWICE PER DAY
     Route: 065
     Dates: start: 20091001
  2. ATROPINE [Concomitant]
     Indication: DRUG USE FOR UNKNOWN INDICATION

REACTIONS (3)
  - OEDEMA PERIPHERAL [None]
  - VERTIGO [None]
  - VISUAL IMPAIRMENT [None]
